FAERS Safety Report 10618740 (Version 1)
Quarter: 2014Q4

REPORT INFORMATION
  Report Type: Spontaneous
  Country: US (occurrence: US)
  Receive Date: 20141202
  Receipt Date: 20141202
  Transmission Date: 20150529
  Serious: No
  Sender: FDA-Public Use
  Company Number: US-PFIZER INC-2014328816

PATIENT
  Age: 21 Year
  Sex: Male
  Weight: 72.56 kg

DRUGS (1)
  1. LYRICA [Suspect]
     Active Substance: PREGABALIN
     Indication: SEIZURE
     Dosage: 225 MG, 2X/DAY
     Dates: start: 2014

REACTIONS (2)
  - Rash generalised [Unknown]
  - Platelet count decreased [Unknown]
